FAERS Safety Report 8758785 (Version 1)
Quarter: 2012Q4

REPORT INFORMATION
  Report Type: Spontaneous
  Country: US (occurrence: None)
  Receive Date: 20120828
  Receipt Date: 20120828
  Transmission Date: 20130627
  Serious: No
  Sender: FDA-Public Use
  Company Number: None

PATIENT
  Age: 52 Year
  Weight: 88.45 kg

DRUGS (7)
  1. PRAMIPEXOLE [Suspect]
     Route: 048
     Dates: start: 20120813, end: 20120820
  2. TOPROL XL [Concomitant]
  3. ESOMEPRAZOLE [Concomitant]
  4. RANITIDINE [Concomitant]
  5. ESCITALOPRAM [Concomitant]
  6. LIPITOR [Concomitant]
  7. VITAMINS [Concomitant]

REACTIONS (2)
  - Product quality issue [None]
  - Drug effect decreased [None]
